FAERS Safety Report 8354539-7 (Version None)
Quarter: 2012Q2

REPORT INFORMATION
  Report Type: 
  Country: None (occurrence: None)
  Receive Date: 20120511
  Receipt Date: 20110222
  Transmission Date: 20120825
  Serious: No
  Sender: FDA-Public Use
  Company Number: US-TEVA-2011000827

PATIENT
  Sex: Female

DRUGS (6)
  1. CELEXA [Concomitant]
     Route: 048
  2. NUVIGIL [Suspect]
     Route: 048
  3. LEXAPRO [Concomitant]
     Route: 048
  4. NUVIGIL [Suspect]
     Route: 048
     Dates: start: 20110220, end: 20110221
  5. HYDROCHLOROTHIAZIDE [Concomitant]
     Route: 048
  6. NUVIGIL [Suspect]
     Indication: SLEEP APNOEA SYNDROME
     Route: 048

REACTIONS (1)
  - INSOMNIA [None]
